FAERS Safety Report 10233314 (Version 1)
Quarter: 2014Q2

REPORT INFORMATION
  Report Type: Spontaneous
  Country: US (occurrence: US)
  Receive Date: 20140612
  Receipt Date: 20140612
  Transmission Date: 20141212
  Serious: No
  Sender: FDA-Public Use
  Company Number: US-B.I. PHARMACEUTICALS,INC./RIDGEFIELD-2014-BI-24885BP

PATIENT
  Age: 53 Year
  Sex: Male
  Weight: 136.07 kg

DRUGS (16)
  1. SPIRIVA [Suspect]
     Indication: CHRONIC OBSTRUCTIVE PULMONARY DISEASE
     Dosage: 18 MCG
     Route: 055
     Dates: start: 201403
  2. DUONEB [Concomitant]
     Indication: CHRONIC OBSTRUCTIVE PULMONARY DISEASE
     Dosage: FOMULATION: INHALATION AEROSOL
     Route: 055
  3. VENTOLIN [Concomitant]
     Indication: DYSPNOEA
     Dosage: FORMULATION: INHALATION AEROSOL
     Route: 055
  4. PROZAC [Concomitant]
     Indication: DEPRESSION
     Dosage: 80 MG
     Route: 065
  5. GEODON [Concomitant]
     Indication: ANXIETY
     Route: 048
  6. NORCO [Concomitant]
     Indication: BACK PAIN
     Dosage: (TABLET) STRENGTH: 10MG/325MG; DAILY DOSE: 30MG/975MG
     Route: 048
  7. NORCO [Concomitant]
     Indication: ARTHRALGIA
  8. OXYCODONE [Concomitant]
     Indication: BACK PAIN
     Dosage: 90 MG
     Route: 048
  9. OXYCODONE [Concomitant]
     Indication: ARTHRALGIA
  10. AMBIEN [Concomitant]
     Indication: INSOMNIA
     Dosage: 10 MG
     Route: 048
  11. FLOMAX [Concomitant]
     Indication: PROSTATOMEGALY
     Dosage: 0.4 MG
     Route: 048
  12. ATENOLOL [Concomitant]
     Indication: VASODILATATION
     Dosage: 100 MG
     Route: 048
  13. LISINOPRIL [Concomitant]
     Indication: HYPERTENSION
     Dosage: 10 MG
     Route: 048
  14. ASPIRIN [Concomitant]
     Indication: ANTICOAGULANT THERAPY
     Dosage: 81 MG
     Route: 048
  15. NEO-SYNEPHRINE [Concomitant]
     Indication: DYSPNOEA
     Dosage: FORMULATION: NASAL SPRAY
     Route: 045
  16. FLONASE [Concomitant]
     Indication: DYSPNOEA
     Dosage: FORMULATION: NASAL SPRAY
     Route: 030

REACTIONS (1)
  - Urine amphetamine positive [Not Recovered/Not Resolved]
